FAERS Safety Report 7779118-1 (Version None)
Quarter: 2011Q3

REPORT INFORMATION
  Report Type: 
  Country: None (occurrence: None)
  Receive Date: 20110926
  Receipt Date: 20110916
  Transmission Date: 20111222
  Serious: Yes (Other)
  Sender: FDA-Public Use
  Company Number: PHHY2011LT83391

PATIENT
  Age: 19 Year
  Sex: Male

DRUGS (2)
  1. VALPROIC ACID [Suspect]
     Indication: EPILEPSY
     Dosage: 2 G/DAY
  2. LAMOTRIGINE [Suspect]
     Indication: EPILEPSY

REACTIONS (15)
  - PRURITUS [None]
  - ENTEROCOCCUS TEST POSITIVE [None]
  - ANAEMIA [None]
  - SKIN INFECTION [None]
  - STAPHYLOCOCCUS TEST POSITIVE [None]
  - PSEUDOMONAS TEST POSITIVE [None]
  - HYPERGLYCAEMIA [None]
  - SKIN HYPERPIGMENTATION [None]
  - TOXIC EPIDERMAL NECROLYSIS [None]
  - EYE PAIN [None]
  - RASH MACULO-PAPULAR [None]
  - BLISTER [None]
  - DERMATITIS BULLOUS [None]
  - HYPOALBUMINAEMIA [None]
  - PYREXIA [None]
